FAERS Safety Report 4657488-0 (Version None)
Quarter: 2005Q2

REPORT INFORMATION
  Report Type: 
  Country: None (occurrence: None)
  Receive Date: 20050506
  Receipt Date: 20050426
  Transmission Date: 20051028
  Serious: Yes (Hospitalization)
  Sender: FDA-Public Use
  Company Number: HQWYE547830MAR05

PATIENT
  Age: 63 Year
  Sex: Male
  Weight: 84.22 kg

DRUGS (9)
  1. RAPAMUNE [Suspect]
     Indication: PROPHYLAXIS AGAINST TRANSPLANT REJECTION
     Dosage: 4 MG 1X PER 1 DAY, ORAL
     Route: 048
     Dates: start: 20040926
  2. CELLCEPT [Suspect]
     Indication: PROPHYLAXIS AGAINST TRANSPLANT REJECTION
     Dosage: 1 G 1X PER 12 HR, ORAL
     Route: 048
  3. PREDNISONE [Suspect]
     Indication: PROPHYLAXIS AGAINST TRANSPLANT REJECTION
     Dosage: 5 MG 1X PER 1 DAY, ORAL
     Route: 048
  4. PEPCID [Concomitant]
  5. SEPTRA [Concomitant]
  6. LOPRESSOR [Concomitant]
  7. COZAAR [Concomitant]
  8. HUMULIN N [Concomitant]
  9. HUMALOG [Concomitant]

REACTIONS (4)
  - BLOOD GLUCOSE INCREASED [None]
  - DEEP VEIN THROMBOSIS [None]
  - TENDERNESS [None]
  - THROMBOPHLEBITIS SUPERFICIAL [None]
